FAERS Safety Report 6747722-5 (Version None)
Quarter: 2010Q2

REPORT INFORMATION
  Report Type: 
  Country: None (occurrence: None)
  Receive Date: 20100528
  Receipt Date: 20100521
  Transmission Date: 20101027
  Serious: Yes (Hospitalization)
  Sender: FDA-Public Use
  Company Number: TR-ELI_LILLY_AND_COMPANY-TR201005005679

PATIENT
  Sex: Female

DRUGS (4)
  1. HUMULIN R [Suspect]
     Indication: GESTATIONAL DIABETES
     Dosage: 10 IU, EACH MORNING
     Route: 064
     Dates: start: 20090101, end: 20100415
  2. HUMULIN R [Suspect]
     Dosage: 10 IU, OTHER
     Route: 064
     Dates: start: 20090101, end: 20100415
  3. HUMULIN R [Suspect]
     Dosage: 10 IU, EACH EVENING
     Route: 064
     Dates: start: 20090101, end: 20100415
  4. HUMULIN N [Suspect]
     Indication: GESTATIONAL DIABETES
     Dosage: 12 U, DAILY (1/D)
     Route: 064
     Dates: start: 20090101, end: 20100415

REACTIONS (4)
  - BLOOD GLUCOSE DECREASED [None]
  - DRUG EXPOSURE DURING PREGNANCY [None]
  - FOETAL MACROSOMIA [None]
  - PREMATURE BABY [None]
